FAERS Safety Report 8897773 (Version 3)
Quarter: 2013Q1

REPORT INFORMATION
  Report Type: Spontaneous
  Country: US (occurrence: US)
  Receive Date: 20121109
  Receipt Date: 20130116
  Transmission Date: 20140127
  Serious: No
  Sender: FDA-Public Use
  Company Number: US-009507513-1210USA014264

PATIENT
  Age: 26 None
  Sex: Male
  Weight: 92.52 kg

DRUGS (4)
  1. PEGINTRON [Suspect]
     Indication: HEPATITIS C
     Dosage: UNK
     Route: 058
     Dates: start: 20120817
  2. PEGINTRON [Suspect]
     Dosage: UNK
  3. RIBAVIRIN [Suspect]
     Indication: HEPATITIS C
     Dosage: UNK
     Route: 048
     Dates: start: 20120817, end: 20121221
  4. TELAPREVIR [Suspect]
     Indication: HEPATITIS C
     Dosage: UNK
     Dates: start: 20120817

REACTIONS (23)
  - Arthralgia [Unknown]
  - Injection site reaction [Unknown]
  - Influenza like illness [Unknown]
  - Pyrexia [Unknown]
  - Rash generalised [Unknown]
  - Fatigue [Unknown]
  - Haemoglobin decreased [Unknown]
  - Depression [Unknown]
  - Drug administered at inappropriate site [Unknown]
  - Skin disorder [Unknown]
  - Weight decreased [Unknown]
  - Pyrexia [Unknown]
  - Arthralgia [Unknown]
  - Alopecia [Unknown]
  - Nausea [Unknown]
  - Rash [Unknown]
  - Injection site reaction [Unknown]
  - Anaemia [Unknown]
  - Fatigue [Unknown]
  - Feeling hot [Unknown]
  - Alopecia [Unknown]
  - Nausea [Unknown]
  - Weight decreased [Unknown]
